FAERS Safety Report 12923591 (Version 1)
Quarter: 2016Q4

REPORT INFORMATION
  Report Type: Spontaneous
  Country: US (occurrence: US)
  Receive Date: 20161109
  Receipt Date: 20161109
  Transmission Date: 20170207
  Serious: No
  Sender: FDA-Public Use
  Company Number: US-BIOGEN-2016BI00312764

PATIENT
  Sex: Female

DRUGS (4)
  1. TYSABRI [Suspect]
     Active Substance: NATALIZUMAB
     Indication: MULTIPLE SCLEROSIS
     Route: 065
     Dates: start: 20090807
  2. AVONEX [Suspect]
     Active Substance: INTERFERON BETA-1A
     Dates: start: 20090807
  3. AVONEX [Suspect]
     Active Substance: INTERFERON BETA-1A
     Dates: start: 20000201, end: 20011201
  4. AVONEX [Suspect]
     Active Substance: INTERFERON BETA-1A
     Indication: MULTIPLE SCLEROSIS
     Route: 065
     Dates: start: 20050924, end: 20060519

REACTIONS (1)
  - Tremor [Unknown]

NARRATIVE: CASE EVENT DATE: 2016
